FAERS Safety Report 8429737-4 (Version None)
Quarter: 2012Q2

REPORT INFORMATION
  Report Type: 
  Country: None (occurrence: None)
  Receive Date: 20120612
  Receipt Date: 20120605
  Transmission Date: 20120825
  Serious: Yes (Other)
  Sender: FDA-Public Use
  Company Number: NO-PFIZER INC-2012134613

PATIENT
  Age: 56 Year
  Sex: Male

DRUGS (2)
  1. LIPITOR [Suspect]
     Dosage: 20 MG, UNK
     Dates: start: 20110101
  2. LIPITOR [Suspect]
     Dosage: 40 MG, UNK
     Dates: start: 20110101

REACTIONS (7)
  - MUSCULOSKELETAL STIFFNESS [None]
  - GLYCOSYLATED HAEMOGLOBIN INCREASED [None]
  - BLOOD GLUCOSE INCREASED [None]
  - BLOOD CREATININE INCREASED [None]
  - MYALGIA [None]
  - GAIT DISTURBANCE [None]
  - MUSCULAR WEAKNESS [None]
